FAERS Safety Report 17666698 (Version 1)
Quarter: 2020Q2

REPORT INFORMATION
  Report Type: Report from Study
  Country: IT (occurrence: IT)
  Receive Date: 20200414
  Receipt Date: 20200414
  Transmission Date: 20200713
  Serious: Yes (Other)
  Sender: FDA-Public Use
  Company Number: IT-MYLANLABS-2020M1037676

PATIENT
  Age: 60 Year
  Sex: Male

DRUGS (5)
  1. FLUOXETINE [Concomitant]
     Active Substance: FLUOXETINE HYDROCHLORIDE
     Indication: DEPRESSION
     Dosage: 20 MILLIGRAM
     Route: 048
  2. TRAMADOL. [Suspect]
     Active Substance: TRAMADOL
     Indication: HAEMORRHOIDS
     Dosage: 30 GTT DROPS, TOTAL
     Route: 048
     Dates: start: 20200216, end: 20200216
  3. PREGABALIN. [Suspect]
     Active Substance: PREGABALIN
     Indication: HAEMORRHOIDS
     Dosage: 125 MILLIGRAM, TOTAL
     Route: 048
     Dates: start: 20200216, end: 20200216
  4. TACHIDOL [Suspect]
     Active Substance: ACETAMINOPHEN\CODEINE PHOSPHATE
     Indication: HAEMORRHOIDS
     Dosage: 1 DOSAGE FORM, TOTAL
     Route: 048
     Dates: start: 20200216, end: 20200216
  5. XANAX [Concomitant]
     Active Substance: ALPRAZOLAM
     Indication: DEPRESSION
     Dosage: 1 DOSAGE FORM
     Route: 048

REACTIONS (3)
  - Medication error [Recovered/Resolved]
  - Hypokinesia [Recovered/Resolved]
  - Bradyphrenia [Recovered/Resolved]

NARRATIVE: CASE EVENT DATE: 20200217
